FAERS Safety Report 17160547 (Version 1)
Quarter: 2019Q4

REPORT INFORMATION
  Report Type: Spontaneous
  Country: US (occurrence: US)
  Receive Date: 20191216
  Receipt Date: 20191216
  Transmission Date: 20200122
  Serious: No
  Sender: FDA-Public Use
  Company Number: US-AMNEAL PHARMACEUTICALS-2019-IPXL-00595

PATIENT
  Sex: Male
  Weight: 136 kg

DRUGS (1)
  1. COLESTIPOL HYDROCHLORIDE. [Suspect]
     Active Substance: COLESTIPOL HYDROCHLORIDE
     Indication: BOWEL MOVEMENT IRREGULARITY
     Dosage: 1 GRAM, QID, 2 TABLETS IN THE MORNING AND 2 TABLETS IN THE EVENING
     Route: 065
     Dates: start: 1995

REACTIONS (1)
  - Drug ineffective for unapproved indication [Unknown]
